FAERS Safety Report 7199453-8 (Version None)
Quarter: 2010Q4

REPORT INFORMATION
  Report Type: 
  Country: None (occurrence: None)
  Receive Date: 20101228
  Receipt Date: 20101217
  Transmission Date: 20110411
  Serious: Yes (Hospitalization)
  Sender: FDA-Public Use
  Company Number: JP-JNJFOC-20101205299

PATIENT
  Sex: Male

DRUGS (29)
  1. CRAVIT [Suspect]
     Indication: INFECTION
     Route: 048
  2. CRAVIT [Suspect]
     Route: 048
  3. CRAVIT [Suspect]
     Route: 048
  4. CRAVIT [Suspect]
     Route: 048
  5. CRAVIT [Suspect]
     Route: 048
  6. CRAVIT [Suspect]
     Route: 048
  7. CRAVIT [Suspect]
     Route: 048
  8. CRAVIT [Suspect]
     Route: 048
  9. LOXONIN [Suspect]
     Indication: TOOTHACHE
     Dosage: AS-NEEDED BASIS
     Route: 048
  10. LOXONIN [Suspect]
     Route: 048
  11. LOXONIN [Suspect]
     Indication: ANALGESIC THERAPY
     Route: 048
  12. LOXONIN [Suspect]
     Dosage: AS-NEEDED BASIS
     Route: 048
  13. LOXONIN [Suspect]
     Indication: PYREXIA
     Route: 048
  14. LOXONIN [Suspect]
     Dosage: AS-NEEDED BASIS
     Route: 048
  15. FLOMOX [Suspect]
     Indication: PRODUCT USED FOR UNKNOWN INDICATION
     Dosage: AS-NEEDED BASIS
     Route: 065
  16. FLOMOX [Suspect]
     Route: 065
  17. CEFDINIR [Suspect]
     Indication: PRODUCT USED FOR UNKNOWN INDICATION
     Dosage: AS-NEEDED BASIS
     Route: 065
  18. KAKKON-TO [Suspect]
     Indication: NASOPHARYNGITIS
     Dosage: AS-NEEDED BASIS
     Route: 065
  19. CELTECT [Concomitant]
     Indication: RHINITIS ALLERGIC
     Dosage: AS-NEEDED BASIS
     Route: 048
  20. REBAMIPIDE [Concomitant]
     Indication: GASTRITIS
     Dosage: AS-NEEDED BASIS
     Route: 048
  21. DAIO-KANZO-TO [Concomitant]
     Indication: CONSTIPATION
     Dosage: AS-NEEDED BASIS
     Route: 048
  22. CALCIUM LACTATE [Concomitant]
     Indication: HYPOCALCAEMIA
     Dosage: AS-NEEDED BASIS
     Route: 048
  23. THYRADIN S [Concomitant]
     Indication: HYPOTHYROIDISM
     Dosage: AS-NEEDED BASIS
     Route: 048
  24. ALTAT [Concomitant]
     Indication: GASTRITIS
     Dosage: AS-NEEDED BASIS
     Route: 048
  25. SENNOSIDE [Concomitant]
     Indication: CONSTIPATION
     Dosage: AS-NEEDED BASIS
     Route: 048
  26. LENDORMIN D [Concomitant]
     Indication: INSOMNIA
     Dosage: AS-NEEDED BASIS
     Route: 048
  27. MUCODYNE [Concomitant]
     Indication: UPPER RESPIRATORY TRACT INFLAMMATION
     Dosage: AS-NEEDED BASIS
     Route: 048
  28. DASEN [Concomitant]
     Indication: UPPER RESPIRATORY TRACT INFLAMMATION
     Dosage: AS-NEEDED BASIS
     Route: 048
  29. NESP [Concomitant]
     Indication: RENAL FAILURE CHRONIC
     Dosage: AS-NEEDED BASIS
     Route: 042

REACTIONS (3)
  - ASTHMA [None]
  - EOSINOPHILIA [None]
  - WHITE BLOOD CELL COUNT INCREASED [None]
